FAERS Safety Report 22379907 (Version 1)
Quarter: 2023Q2

REPORT INFORMATION
  Report Type: Spontaneous
  Country: FR (occurrence: FR)
  Receive Date: 20230529
  Receipt Date: 20230529
  Transmission Date: 20230722
  Serious: Yes (Hospitalization, Other)
  Sender: FDA-Public Use
  Company Number: FR-009507513-2305FRA009249

PATIENT
  Age: 69 Year
  Sex: Female

DRUGS (1)
  1. KEYTRUDA [Suspect]
     Active Substance: PEMBROLIZUMAB
     Indication: Triple negative breast cancer
     Dosage: 200 MILLIGRAM, Q3W
     Dates: end: 202209

REACTIONS (2)
  - Pulmonary embolism [Unknown]
  - Guillain-Barre syndrome [Unknown]

NARRATIVE: CASE EVENT DATE: 20220901
